FAERS Safety Report 5127765-8 (Version None)
Quarter: 2006Q4

REPORT INFORMATION
  Report Type: 
  Country: None (occurrence: None)
  Receive Date: 20061016
  Receipt Date: 20060512
  Transmission Date: 20070319
  Serious: Yes (Death, Hospitalization, Other)
  Sender: FDA-Public Use
  Company Number: HU-BRISTOL-MYERS SQUIBB COMPANY-13376397

PATIENT
  Age: 69 Year
  Sex: Female

DRUGS (3)
  1. DASATINIB [Suspect]
     Indication: LEUKAEMIA
     Dosage: DOSING: 140 MG, 25JAN-09MAY, 180 MG STARTED 10MAY06 D/C: 15MAY06
     Route: 048
     Dates: start: 20060125, end: 20060515
  2. FUROSEMIDE [Concomitant]
     Dates: start: 20060508
  3. IMATINIB MESILATE [Concomitant]
     Dates: start: 20060515

REACTIONS (3)
  - CARDIAC FAILURE [None]
  - MALIGNANT NEOPLASM PROGRESSION [None]
  - PERICARDIAL EFFUSION [None]
